FAERS Safety Report 15720524 (Version 1)
Quarter: 2018Q4

REPORT INFORMATION
  Report Type: Spontaneous
  Country: IT (occurrence: IT)
  Receive Date: 20181213
  Receipt Date: 20181213
  Transmission Date: 20190205
  Serious: Yes (Other)
  Sender: FDA-Public Use
  Company Number: IT-009507513-1812ITA005216

PATIENT
  Age: 73 Year
  Sex: Female

DRUGS (1)
  1. ADRONAT 70MG COMPRESSE [Suspect]
     Active Substance: ALENDRONATE SODIUM
     Indication: OSTEOPOROSIS
     Dosage: 70 MILLIGRAM, QW
     Route: 048
     Dates: start: 20170901, end: 20180115

REACTIONS (1)
  - Oedema [Recovering/Resolving]

NARRATIVE: CASE EVENT DATE: 20180115
